FAERS Safety Report 18503750 (Version 12)
Quarter: 2022Q2

REPORT INFORMATION
  Report Type: Report from Study
  Country: CO (occurrence: CO)
  Receive Date: 20201113
  Receipt Date: 20220517
  Transmission Date: 20220721
  Serious: Yes (Death, Life-Threatening, Hospitalization, Other)
  Sender: FDA-Public Use
  Company Number: CO-TAKEDA-CO202019915

PATIENT
  Age: 24 Year
  Sex: Male
  Weight: 48 kg

DRUGS (4)
  1. IDURSULFASE [Suspect]
     Active Substance: IDURSULFASE
     Indication: Mucopolysaccharidosis II
     Dosage: 6 MILLIGRAM, 1/WEEK
     Route: 042
     Dates: start: 20101201
  2. IDURSULFASE [Suspect]
     Active Substance: IDURSULFASE
     Dosage: 2 MILLIGRAM PER MILLILITRE
     Route: 042
     Dates: start: 20130301
  3. IDURSULFASE [Suspect]
     Active Substance: IDURSULFASE
     Dosage: 24 MILLIGRAM, 1/WEEK
     Route: 042
     Dates: start: 20201201
  4. ENOXAPARIN [Suspect]
     Active Substance: ENOXAPARIN
     Indication: Product used for unknown indication
     Dosage: UNK
     Route: 065

REACTIONS (14)
  - Adverse event [Fatal]
  - Cardiac arrest [Recovering/Resolving]
  - Myocardial infarction [Recovering/Resolving]
  - Adverse drug reaction [Recovered/Resolved]
  - COVID-19 [Recovering/Resolving]
  - Drowning [Recovering/Resolving]
  - Chest pain [Recovered/Resolved]
  - Dyspnoea [Recovering/Resolving]
  - Cough [Recovering/Resolving]
  - Tracheostomy [Recovering/Resolving]
  - Drug hypersensitivity [Recovered/Resolved]
  - Weight increased [Unknown]
  - Blood disorder [Unknown]
  - Inappropriate schedule of product administration [Unknown]

NARRATIVE: CASE EVENT DATE: 20200628
